FAERS Safety Report 16781527 (Version 3)
Quarter: 2020Q3

REPORT INFORMATION
  Report Type: Spontaneous
  Country: JP (occurrence: JP)
  Receive Date: 20190906
  Receipt Date: 20200701
  Transmission Date: 20201102
  Serious: Yes (Hospitalization, Other)
  Sender: FDA-Public Use
  Company Number: JP-ASTRAZENECA-2019SF26185

PATIENT
  Age: 74 Year
  Sex: Female
  Weight: 33 kg

DRUGS (3)
  1. SODIUM CHLORIDE. [Concomitant]
     Active Substance: SODIUM CHLORIDE
     Route: 065
     Dates: start: 20190716
  2. SODIUM PICOSULFATE HYDRATE [Concomitant]
     Active Substance: SODIUM PICOSULFATE
     Dosage: 10 DRIPS PER DOSE, 1?2 TIMES/DAY
     Route: 048
     Dates: start: 20190713
  3. TAGRISSO [Suspect]
     Active Substance: OSIMERTINIB
     Indication: NON-SMALL CELL LUNG CANCER
     Route: 048
     Dates: start: 20190719, end: 20190827

REACTIONS (3)
  - Eczema [Unknown]
  - Stevens-Johnson syndrome [Recovering/Resolving]
  - Erythema multiforme [Unknown]

NARRATIVE: CASE EVENT DATE: 20190816
